FAERS Safety Report 5075434-5 (Version None)
Quarter: 2006Q3

REPORT INFORMATION
  Report Type: 
  Country: None (occurrence: None)
  Receive Date: 20060807
  Receipt Date: 20060807
  Transmission Date: 20061208
  Serious: Yes (Other)
  Sender: FDA-Public Use
  Company Number: None

PATIENT
  Age: 44 Year
  Sex: Female

DRUGS (1)
  1. ULTRAVIST 370 [Suspect]
     Dosage: 125 CC IV
     Route: 042

REACTIONS (6)
  - ANXIETY [None]
  - BLOOD PRESSURE SYSTOLIC DECREASED [None]
  - BURNING SENSATION [None]
  - CARDIAC DISORDER [None]
  - DYSPNOEA [None]
  - HYPERSENSITIVITY [None]
